FAERS Safety Report 23973670 (Version 3)
Quarter: 2025Q2

REPORT INFORMATION
  Report Type: Spontaneous
  Country: US (occurrence: None)
  Receive Date: 20240613
  Receipt Date: 20250424
  Transmission Date: 20250716
  Serious: Yes (Hospitalization, Other)
  Sender: MDD OPERATIONS
  Company Number: US-MDD US Operations-MDD202403-000880

PATIENT
  Age: 59 Year
  Sex: Male

DRUGS (7)
  1. APOKYN [Suspect]
     Active Substance: APOMORPHINE HYDROCHLORIDE
     Indication: Parkinson^s disease
     Dates: start: 20240306
  2. APOKYN [Suspect]
     Active Substance: APOMORPHINE HYDROCHLORIDE
     Route: 058
     Dates: start: 2024
  3. APOKYN [Suspect]
     Active Substance: APOMORPHINE HYDROCHLORIDE
     Dosage: (5X3ML)
     Route: 058
     Dates: start: 202402
  4. APOKYN [Suspect]
     Active Substance: APOMORPHINE HYDROCHLORIDE
     Dosage: USUALLY DOES IT 4-5 TIMES PER DAY
     Route: 058
  5. APOKYN [Suspect]
     Active Substance: APOMORPHINE HYDROCHLORIDE
     Dates: start: 20240306
  6. CARBIDOPA\LEVODOPA [Concomitant]
     Active Substance: CARBIDOPA\LEVODOPA
  7. AMANTADINE [Concomitant]
     Active Substance: AMANTADINE

REACTIONS (11)
  - Unresponsive to stimuli [Unknown]
  - Hospitalisation [Unknown]
  - Gait disturbance [Unknown]
  - Head injury [Recovered/Resolved]
  - Vomiting [Unknown]
  - Insomnia [Unknown]
  - Dizziness [Recovered/Resolved]
  - Nausea [Recovered/Resolved]
  - Nausea [Recovered/Resolved]
  - Headache [Recovered/Resolved]
  - Fall [Recovered/Resolved]

NARRATIVE: CASE EVENT DATE: 20240306
